FAERS Safety Report 15245463 (Version 1)
Quarter: 2018Q3

REPORT INFORMATION
  Report Type: Spontaneous
  Country: ES (occurrence: ES)
  Receive Date: 20180806
  Receipt Date: 20180806
  Transmission Date: 20181010
  Serious: Yes (Other)
  Sender: FDA-Public Use
  Company Number: PHHY2018ES060258

PATIENT
  Age: 6 Year
  Sex: Male

DRUGS (4)
  1. LINEZOLID. [Suspect]
     Active Substance: LINEZOLID
     Dosage: 20 MG/KG, UNK
     Route: 065
  2. LEVOFLOXACIN. [Concomitant]
     Active Substance: LEVOFLOXACIN
     Indication: TUBERCULOSIS
     Route: 065
  3. ISONIAZID. [Concomitant]
     Active Substance: ISONIAZID
     Indication: TUBERCULOSIS
     Route: 065
  4. LINEZOLID. [Suspect]
     Active Substance: LINEZOLID
     Indication: PULMONARY TUBERCULOSIS
     Dosage: 10 MG/KG, UNK
     Route: 065

REACTIONS (2)
  - Gastrointestinal disorder [Unknown]
  - Diarrhoea [Unknown]
